FAERS Safety Report 22375161 (Version 1)
Quarter: 2023Q2

REPORT INFORMATION
  Report Type: Spontaneous
  Country: CN (occurrence: CN)
  Receive Date: 20230527
  Receipt Date: 20230527
  Transmission Date: 20230721
  Serious: Yes (Life-Threatening, Other)
  Sender: FDA-Public Use
  Company Number: CN-002147023-NVSC2023CN121191

PATIENT
  Age: 15 Year
  Sex: Male
  Weight: 50 kg

DRUGS (1)
  1. OXCARBAZEPINE [Suspect]
     Active Substance: OXCARBAZEPINE
     Indication: Epilepsy
     Dosage: 90 G, QD
     Route: 048
     Dates: start: 20230508, end: 20230508

REACTIONS (6)
  - Altered state of consciousness [Recovering/Resolving]
  - Fascicular block [Unknown]
  - Electrocardiogram ST segment elevation [Unknown]
  - Urinary incontinence [Recovering/Resolving]
  - Salivary hypersecretion [Unknown]
  - Intentional overdose [Unknown]

NARRATIVE: CASE EVENT DATE: 20230508
